FAERS Safety Report 7254647-8 (Version None)
Quarter: 2011Q1

REPORT INFORMATION
  Report Type: 
  Country: None (occurrence: None)
  Receive Date: 20110129
  Receipt Date: 20100331
  Transmission Date: 20110831
  Serious: No
  Sender: FDA-Public Use
  Company Number: US-ABBOTT-10P-163-0636601-00

PATIENT
  Sex: Female
  Weight: 123.94 kg

DRUGS (20)
  1. HUMIRA [Suspect]
     Indication: RHEUMATOID ARTHRITIS
     Route: 058
     Dates: start: 20090901
  2. CLONAZEPAM [Concomitant]
     Indication: ANXIETY DISORDER
     Route: 048
  3. METFORMIN [Concomitant]
     Indication: GLUCOSE TOLERANCE IMPAIRED
     Route: 048
  4. METHOTREXATE [Concomitant]
     Indication: ALOPECIA
     Route: 048
  5. HUMIRA [Suspect]
     Route: 058
     Dates: start: 20090101, end: 20090101
  6. LORTAB [Concomitant]
     Indication: ARTHRALGIA
  7. OXYCARBAZAPINE [Concomitant]
     Indication: DEPRESSION
     Route: 048
  8. TRAZODONE [Concomitant]
     Indication: INSOMNIA
     Route: 048
  9. HUMIRA [Suspect]
     Route: 058
     Dates: start: 20090101, end: 20100311
  10. DICYCLOMINE [Concomitant]
     Indication: IRRITABLE BOWEL SYNDROME
     Route: 048
  11. FOLIC ACID [Concomitant]
     Indication: ALOPECIA
     Route: 048
  12. LORTAB [Concomitant]
     Indication: FIBROMYALGIA
     Route: 048
  13. FLEXERIL [Concomitant]
     Indication: FIBROMYALGIA
     Route: 048
  14. UNKNOWN LEG CRAMP MEDICATION OTC [Concomitant]
     Indication: MUSCLE SPASMS
     Route: 048
  15. OXYCARBAZAPINE [Concomitant]
     Indication: PAIN
  16. ZENLAFAXINE [Concomitant]
     Indication: DEPRESSION
     Route: 048
  17. PLAQUENIL [Concomitant]
     Indication: RHEUMATOID ARTHRITIS
     Route: 048
  18. SOMA [Concomitant]
     Indication: INSOMNIA
     Route: 048
  19. ISONIAZID [Concomitant]
     Indication: TUBERCULIN TEST POSITIVE
     Route: 048
     Dates: start: 20090901
  20. VITAMIN B-12 [Concomitant]
     Indication: VITAMIN SUPPLEMENTATION
     Route: 060

REACTIONS (6)
  - SNEEZING [None]
  - AMENORRHOEA [None]
  - DRUG INEFFECTIVE [None]
  - RHINORRHOEA [None]
  - ASTHENIA [None]
  - BRONCHITIS [None]
